FAERS Safety Report 4560629-7 (Version None)
Quarter: 2005Q1

REPORT INFORMATION
  Report Type: 
  Country: None (occurrence: None)
  Receive Date: 20050125
  Receipt Date: 20050120
  Transmission Date: 20050727
  Serious: Yes (Hospitalization)
  Sender: FDA-Public Use
  Company Number: US-MERCK-0501USA03187

PATIENT
  Age: 53 Year
  Sex: Female

DRUGS (3)
  1. VYTORIN [Suspect]
     Indication: HYPERCHOLESTEROLAEMIA
     Route: 048
     Dates: start: 20041101
  2. ASPIRIN [Concomitant]
     Route: 065
  3. TOPROL-XL [Concomitant]
     Route: 065

REACTIONS (7)
  - ANXIETY [None]
  - CRANIAL NERVE DISORDER [None]
  - DIZZINESS [None]
  - FATIGUE [None]
  - PARAESTHESIA [None]
  - TRANSIENT ISCHAEMIC ATTACK [None]
  - TREMOR [None]
